FAERS Safety Report 6306307-5 (Version None)
Quarter: 2009Q3

REPORT INFORMATION
  Report Type: 
  Country: None (occurrence: None)
  Receive Date: 20090812
  Receipt Date: 20090731
  Transmission Date: 20100115
  Serious: Yes (Other)
  Sender: FDA-Public Use
  Company Number: PHHY2009SE31082

PATIENT
  Sex: Male
  Weight: 45 kg

DRUGS (4)
  1. GLEEVEC [Suspect]
     Indication: GASTROINTESTINAL STROMAL TUMOUR
     Dosage: 400 MG, UNK
     Route: 048
     Dates: start: 20090108
  2. ACETAMINOPHEN [Concomitant]
  3. ZOPIKLON NM PHARMA [Concomitant]
     Dosage: 5 MG, UNK
  4. DIMOR [Concomitant]
     Dosage: 2 MG WHEN NEEDED

REACTIONS (1)
  - SQUAMOUS CELL CARCINOMA [None]
